FAERS Safety Report 5307417-1 (Version None)
Quarter: 2007Q1

REPORT INFORMATION
  Report Type: 
  Country: None (occurrence: None)
  Receive Date: 20070201
  Receipt Date: 20061208
  Transmission Date: 20070707
  Serious: No
  Sender: FDA-Public Use
  Company Number: 2006PV026613

PATIENT
  Age: 65 Year
  Sex: Female
  Weight: 89.3586 kg

DRUGS (3)
  1. BYETTA [Suspect]
     Indication: DIABETES MELLITUS NON-INSULIN-DEPENDENT
     Dosage: 10 MCG BID SC
     Route: 058
     Dates: start: 20060101
  2. GLUCOPHAGE [Concomitant]
  3. GLUCOTROL [Concomitant]

REACTIONS (6)
  - ARTHROPATHY [None]
  - BACK DISORDER [None]
  - BLOOD GLUCOSE DECREASED [None]
  - CONDITION AGGRAVATED [None]
  - SCIATICA [None]
  - WEIGHT DECREASED [None]
